FAERS Safety Report 18016315 (Version 1)
Quarter: 2020Q3

REPORT INFORMATION
  Report Type: Spontaneous
  Country: US (occurrence: US)
  Receive Date: 20200713
  Receipt Date: 20200713
  Transmission Date: 20201103
  Serious: Yes (Death, Other)
  Sender: FDA-Public Use
  Company Number: US-PFIZER INC-2020266936

PATIENT
  Age: 58 Year
  Sex: Female

DRUGS (8)
  1. CORTISONE [Interacting]
     Active Substance: CORTISONE
     Indication: FEELING ABNORMAL
     Dosage: 20 MG
  2. FLUDROCORTISONE ACETATE. [Interacting]
     Active Substance: FLUDROCORTISONE ACETATE
     Dosage: UNK, DAILY (WOKE NEXT DAY AND TOOK DAILY DOSE OF CORTISONE, FLUDROCORTISONE AND LEVOTHYROXINE)
  3. ALBUTEROL SULFATE. [Interacting]
     Active Substance: ALBUTEROL SULFATE
     Dosage: UNK, 2X/DAY (TOOK 1 DOSE ALBUTEROL IN AFTERNOON AND 1 BEFORE GOING TO BED)
  4. HYDROCORTISONE ACETATE. [Suspect]
     Active Substance: HYDROCORTISONE ACETATE
     Dosage: UNK
  5. FLUTICASONE PROPIONATE. [Interacting]
     Active Substance: FLUTICASONE PROPIONATE
     Dosage: UNK
  6. CORTISONE [Interacting]
     Active Substance: CORTISONE
     Indication: STRESS
     Dosage: UNK, DAILY (WOKE NEXT DAY AND TOOK DAILY DOSE OF CORTISONE, FLUDROCORTISONE AND LEVOTHYROXINE)
  7. CORTISONE [Interacting]
     Active Substance: CORTISONE
     Dosage: 25 MG
  8. LEVOTHYROXINE SODIUM. [Interacting]
     Active Substance: LEVOTHYROXINE SODIUM
     Dosage: UNK, DAILY (WOKE NEXT DAY AND TOOK DAILY DOSE OF CORTISONE, FLUDROCORTISONE AND LEVOTHYROXINE)

REACTIONS (6)
  - Respiratory distress [Unknown]
  - Electrolyte imbalance [Fatal]
  - Urinary incontinence [Unknown]
  - Loss of consciousness [Unknown]
  - Dyspnoea [Unknown]
  - Drug interaction [Fatal]
